FAERS Safety Report 10209963 (Version 1)
Quarter: 2014Q2

REPORT INFORMATION
  Report Type: Spontaneous
  Country: FR (occurrence: FR)
  Receive Date: 20140602
  Receipt Date: 20140602
  Transmission Date: 20141212
  Serious: Yes (Hospitalization)
  Sender: FDA-Public Use
  Company Number: FR-TEVA-483574ISR

PATIENT
  Age: 48 Year
  Sex: Male

DRUGS (6)
  1. QVAR [Suspect]
     Indication: BRONCHITIS
     Route: 048
     Dates: start: 20120921, end: 20120924
  2. PYOSTACINE [Suspect]
     Indication: BRONCHITIS
     Route: 048
     Dates: start: 20120921, end: 20120924
  3. CELEBREX [Suspect]
     Indication: BRONCHITIS
     Route: 048
     Dates: start: 20120921, end: 20120924
  4. RHINOFLUIMUCIL [Suspect]
     Indication: BRONCHITIS
     Route: 055
     Dates: start: 20120921, end: 20120924
  5. EXOMUC [Suspect]
     Indication: BRONCHITIS
     Route: 048
     Dates: start: 20120921, end: 20120924
  6. EFFERALGAN [Suspect]
     Indication: BRONCHITIS
     Route: 048
     Dates: start: 20120921, end: 20120924

REACTIONS (1)
  - Acute generalised exanthematous pustulosis [Recovered/Resolved]
